FAERS Safety Report 4356992-2 (Version None)
Quarter: 2004Q2

REPORT INFORMATION
  Report Type: 
  Country: None (occurrence: None)
  Receive Date: 20040512
  Receipt Date: 20040503
  Transmission Date: 20050107
  Serious: Yes (Hospitalization)
  Sender: FDA-Public Use
  Company Number: DE-BRISTOL-MYERS SQUIBB COMPANY-12576765

PATIENT
  Age: 66 Year
  Sex: Female
  Weight: 43 kg

DRUGS (2)
  1. CARBOPLATIN [Suspect]
     Indication: ENDOMETRIAL CANCER
     Dosage: THERAPY DATES: MAR-2004 TO 14-APR-2004
     Route: 042
     Dates: start: 20040414, end: 20040414
  2. CAELYX [Suspect]
     Indication: ENDOMETRIAL CANCER
     Dosage: THERAPY DATES: MAR-2004 TO 14-APR-2004
     Route: 042
     Dates: start: 20040414, end: 20040414

REACTIONS (1)
  - HEPATIC PAIN [None]
